FAERS Safety Report 25249281 (Version 1)
Quarter: 2025Q2

REPORT INFORMATION
  Report Type: Spontaneous
  Country: US (occurrence: US)
  Receive Date: 20250429
  Receipt Date: 20250429
  Transmission Date: 20250717
  Serious: No
  Sender: TEVA
  Company Number: US-TEVA-VS-3323366

PATIENT
  Age: 61 Year
  Sex: Male

DRUGS (3)
  1. AJOVY [Suspect]
     Active Substance: FREMANEZUMAB-VFRM
     Indication: Headache
     Route: 065
     Dates: start: 202411
  2. AJOVY [Suspect]
     Active Substance: FREMANEZUMAB-VFRM
  3. TOPAMAX [Concomitant]
     Active Substance: TOPIRAMATE
     Indication: Product used for unknown indication
     Route: 065

REACTIONS (2)
  - Hypertension [Unknown]
  - Off label use [Unknown]

NARRATIVE: CASE EVENT DATE: 20241101
